FAERS Safety Report 11267270 (Version 2)
Quarter: 2015Q4

REPORT INFORMATION
  Report Type: Report from Study
  Country: TR (occurrence: TR)
  Receive Date: 20150713
  Receipt Date: 20151021
  Transmission Date: 20160304
  Serious: No
  Sender: FDA-Public Use
  Company Number: TR-BAXALTA-2015BLT000390

PATIENT
  Age: 5 Year
  Sex: Male

DRUGS (5)
  1. PEGYLATED COAGULATION FACTOR VIII [Suspect]
     Active Substance: RURIOCTOCOG ALFA PEGOL
     Dosage: UNK
     Dates: start: 20150619, end: 20150619
  2. ADVATE [Suspect]
     Active Substance: ANTIHEMOPHILIC FACTOR, HUMAN RECOMBINANT
     Indication: DRUG LEVEL
     Dosage: 1500 IU, ONCE
     Route: 048
     Dates: start: 20150424, end: 20150424
  3. PEGYLATED COAGULATION FACTOR VIII [Suspect]
     Active Substance: RURIOCTOCOG ALFA PEGOL
     Dosage: 1500 IU, 2X A WEEK
     Route: 048
     Dates: start: 20150619, end: 20150619
  4. PEGYLATED COAGULATION FACTOR VIII [Suspect]
     Active Substance: RURIOCTOCOG ALFA PEGOL
     Indication: FACTOR VIII DEFICIENCY
     Dosage: 1500 IU, 2X A WEEK
     Route: 048
     Dates: start: 20150427, end: 20150427
  5. PEGYLATED COAGULATION FACTOR VIII [Suspect]
     Active Substance: RURIOCTOCOG ALFA PEGOL
     Indication: HAEMORRHAGE PROPHYLAXIS
     Dosage: UNK
     Dates: start: 20150427, end: 20150427

REACTIONS (1)
  - Upper limb fracture [Recovering/Resolving]

NARRATIVE: CASE EVENT DATE: 20150629
